FAERS Safety Report 22343181 (Version 2)
Quarter: 2023Q2

REPORT INFORMATION
  Report Type: Report from Study
  Country: CH (occurrence: CH)
  Receive Date: 20230519
  Receipt Date: 20230623
  Transmission Date: 20230722
  Serious: Yes (Hospitalization)
  Sender: FDA-Public Use
  Company Number: CH-ABBVIE-4771228

PATIENT
  Age: 84 Year
  Sex: Female

DRUGS (6)
  1. CARBIDOPA\LEVODOPA [Suspect]
     Active Substance: CARBIDOPA\LEVODOPA
     Indication: Parkinson^s disease
     Dosage: MD: 6.0 ML, CRD: 3.5ML/H, ED: 1 ML, FREQUENCY TEXT: 16H THERAPY
     Route: 050
     Dates: start: 20221103
  2. CARBIDOPA\LEVODOPA [Suspect]
     Active Substance: CARBIDOPA\LEVODOPA
     Dosage: MD: 6.0 ML, CRD: 3.7 ML/H, ED: 1 ML
     Route: 050
     Dates: start: 20220613, end: 20220721
  3. CARBIDOPA\LEVODOPA [Suspect]
     Active Substance: CARBIDOPA\LEVODOPA
     Dosage: MD: 6.0 ML, CRD: 3.5ML/H, ED: 1 ML
     Route: 050
     Dates: start: 20220721, end: 20220831
  4. CARBIDOPA\LEVODOPA [Suspect]
     Active Substance: CARBIDOPA\LEVODOPA
     Dosage: MD: 6.0 ML, CRD: 3.5ML/H, ED: 1 ML
     Route: 050
     Dates: start: 20220513, end: 20220613
  5. CARBIDOPA\LEVODOPA [Suspect]
     Active Substance: CARBIDOPA\LEVODOPA
     Route: 050
     Dates: start: 20180411
  6. CARBIDOPA\LEVODOPA [Suspect]
     Active Substance: CARBIDOPA\LEVODOPA
     Dosage: MD: 6.0 ML, CRD: 3.5ML/H, ED: 1 ML
     Route: 050
     Dates: start: 20220831, end: 20221103

REACTIONS (3)
  - Pneumonia [Recovered/Resolved]
  - Device connection issue [Recovered/Resolved]
  - Product administration error [Unknown]

NARRATIVE: CASE EVENT DATE: 20230501
